FAERS Safety Report 11776452 (Version 1)
Quarter: 2015Q4

REPORT INFORMATION
  Report Type: Spontaneous
  Country: IN (occurrence: IN)
  Receive Date: 20151125
  Receipt Date: 20151125
  Transmission Date: 20160304
  Serious: Yes (Death)
  Sender: FDA-Public Use
  Company Number: IN-009507513-1511IND012306

PATIENT
  Age: 68 Year
  Sex: Female
  Weight: 65 kg

DRUGS (1)
  1. JANUMET [Suspect]
     Active Substance: METFORMIN HYDROCHLORIDE\SITAGLIPTIN PHOSPHATE
     Indication: DIABETES MELLITUS
     Dosage: DOSE REPORTED AS 2 (UNITS NOT REPORTED), UNK
     Route: 048

REACTIONS (4)
  - Crying [Unknown]
  - Depression [Unknown]
  - Cerebral thrombosis [Fatal]
  - Amnesia [Unknown]
